FAERS Safety Report 15440189 (Version 1)
Quarter: 2018Q4

REPORT INFORMATION
  Report Type: Spontaneous
  Country: UA (occurrence: UA)
  Receive Date: 20180928
  Receipt Date: 20180928
  Transmission Date: 20190204
  Serious: Yes (Death)
  Sender: FDA-Public Use
  Company Number: PHHY2018UA110192

PATIENT
  Sex: Male

DRUGS (3)
  1. BUSULFANUM [Suspect]
     Active Substance: BUSULFAN
     Indication: STEM CELL TRANSPLANT
     Route: 065
  2. FLUDARABINE [Suspect]
     Active Substance: FLUDARABINE PHOSPHATE
     Indication: STEM CELL TRANSPLANT
     Route: 065
  3. MELPHALANUM [Suspect]
     Active Substance: MELPHALAN
     Indication: STEM CELL TRANSPLANT
     Route: 065

REACTIONS (10)
  - Sepsis [Fatal]
  - Generalised oedema [Fatal]
  - Hepatic failure [Fatal]
  - Nephropathy [Fatal]
  - Mucosal inflammation [Fatal]
  - Hepatitis toxic [Fatal]
  - Venoocclusive disease [Fatal]
  - Renal failure [Fatal]
  - Encephalopathy [Fatal]
  - Multiple organ dysfunction syndrome [Fatal]

NARRATIVE: CASE EVENT DATE: 20120202
